FAERS Safety Report 7081493-0 (Version None)
Quarter: 2010Q4

REPORT INFORMATION
  Report Type: 
  Country: None (occurrence: None)
  Receive Date: 20101103
  Receipt Date: 20101025
  Transmission Date: 20110411
  Serious: Yes (Hospitalization)
  Sender: FDA-Public Use
  Company Number: US-WATSON-2010-14045

PATIENT
  Sex: Female
  Weight: 63.492 kg

DRUGS (2)
  1. ALBUTEROL SULFATE AND IPRATROPIUM BROMIDE [Suspect]
     Indication: ASTHMA
     Dosage: 1 VIAL QID; ONLY USES A COUPLE OF TIMES A MONTH
     Route: 055
  2. ALBUTEROL SULFATE AND IPRATROPIUM BROMIDE [Suspect]
     Dosage: 1 VIAL QID; ONLY USES A COUPLE OF TIMES A MONTH
     Route: 055
     Dates: start: 20091001

REACTIONS (9)
  - ASTHMA [None]
  - CHRONIC OBSTRUCTIVE PULMONARY DISEASE [None]
  - COUGH [None]
  - DRUG DOSE OMISSION [None]
  - DRUG INEFFECTIVE [None]
  - DYSPNOEA [None]
  - LOSS OF CONSCIOUSNESS [None]
  - PNEUMONIA BACTERIAL [None]
  - RESPIRATORY FAILURE [None]
